FAERS Safety Report 8188994-2 (Version None)
Quarter: 2012Q1

REPORT INFORMATION
  Report Type: 
  Country: None (occurrence: None)
  Receive Date: 20120307
  Receipt Date: 20120229
  Transmission Date: 20120608
  Serious: Yes (Hospitalization)
  Sender: FDA-Public Use
  Company Number: US-BIOGENIDEC-2011BI031284

PATIENT
  Age: 60 Year
  Sex: Female

DRUGS (15)
  1. TYSABRI [Suspect]
     Route: 042
     Dates: start: 20061010, end: 20110622
  2. MULTI-VITAMIN [Concomitant]
     Route: 048
  3. FISH OIL [Concomitant]
     Route: 048
  4. ASCORBIC ACID [Concomitant]
     Route: 048
  5. VITAMIN B-12 [Concomitant]
     Route: 048
  6. TESTOSTERONE [Concomitant]
     Route: 062
  7. NUVIGIL [Concomitant]
     Route: 048
  8. PROGESTERONE [Concomitant]
     Route: 048
  9. ASPIRIN [Concomitant]
     Route: 048
  10. FOLIC ACID [Concomitant]
     Route: 048
  11. ADVAIR HFA [Concomitant]
     Route: 055
  12. VITAMIN D [Concomitant]
     Route: 048
  13. MULTI-VITAMIN [Concomitant]
  14. TYSABRI [Suspect]
     Indication: MULTIPLE SCLEROSIS
     Route: 042
     Dates: start: 20050201, end: 20050201
  15. B6 [Concomitant]
     Route: 048

REACTIONS (3)
  - NORMOCHROMIC NORMOCYTIC ANAEMIA [None]
  - ENCEPHALITIS HERPES [None]
  - HYPONATRAEMIA [None]
